FAERS Safety Report 5889461-9 (Version None)
Quarter: 2008Q3

REPORT INFORMATION
  Report Type: 
  Country: None (occurrence: None)
  Receive Date: 20080919
  Receipt Date: 20080911
  Transmission Date: 20090109
  Serious: Yes (Hospitalization, Other)
  Sender: FDA-Public Use
  Company Number: US-BAYER-200833393NA

PATIENT
  Age: 55 Year
  Sex: Female

DRUGS (1)
  1. MAGNEVIST [Suspect]
     Indication: NUCLEAR MAGNETIC RESONANCE IMAGING
     Dosage: TOTAL DAILY DOSE: 18 ML
     Route: 042
     Dates: start: 20080909, end: 20080909

REACTIONS (5)
  - DYSPHAGIA [None]
  - DYSPNOEA [None]
  - HYPOAESTHESIA ORAL [None]
  - NAUSEA [None]
  - VOMITING [None]
